FAERS Safety Report 7694391-6 (Version None)
Quarter: 2011Q3

REPORT INFORMATION
  Report Type: 
  Country: None (occurrence: None)
  Receive Date: 20110819
  Receipt Date: 20110809
  Transmission Date: 20111222
  Serious: Yes (Hospitalization)
  Sender: FDA-Public Use
  Company Number: JP-BRISTOL-MYERS SQUIBB COMPANY-15983067

PATIENT
  Age: 68 Year
  Sex: Male

DRUGS (5)
  1. CANDESARTAN CILEXETIL [Concomitant]
     Dosage: UNISIA
     Route: 048
     Dates: start: 20110511, end: 20110725
  2. AMLODIPINE BESYLATE [Concomitant]
     Dosage: UNISIA
     Route: 048
     Dates: start: 20110511, end: 20110725
  3. METFORMIN HCL [Suspect]
     Indication: DIABETES MELLITUS
     Route: 048
     Dates: start: 20110706, end: 20110713
  4. SITAGLIPTIN PHOSPHATE [Concomitant]
     Dosage: GLACTIV
     Route: 048
  5. METFORMIN HCL [Concomitant]
     Route: 048
     Dates: start: 20110705, end: 20110706

REACTIONS (1)
  - PAPULE [None]
